FAERS Safety Report 5298628-2 (Version None)
Quarter: 2007Q2

REPORT INFORMATION
  Report Type: 
  Country: None (occurrence: None)
  Receive Date: 20070410
  Receipt Date: 20070327
  Transmission Date: 20071010
  Serious: Yes (Hospitalization)
  Sender: FDA-Public Use
  Company Number: 430003N07USA

PATIENT
  Age: 63 Year
  Sex: Male
  Weight: 68 kg

DRUGS (20)
  1. NOVANTRONE [Suspect]
     Dosage: 21 MG, 1 IN 3 MONTHS
     Dates: start: 20021206, end: 20060224
  2. FELODIPINE [Concomitant]
  3. ACETYLSALICYLIC ACID SRT [Concomitant]
  4. BENAZEPRIL HYDROCHLORIDE [Concomitant]
  5. MORNIFLUMATE [Concomitant]
  6. SIMVASTATIN [Concomitant]
  7. TEMAZEPAM [Concomitant]
  8. GABAPENTIN [Concomitant]
  9. IBUPROFEN [Concomitant]
  10. BETASERON [Concomitant]
  11. VICODIN [Concomitant]
  12. CITALOPRAM HYDROBROMIDE [Concomitant]
  13. TOLTERODINE [Concomitant]
  14. NAPROXEN [Concomitant]
  15. BUPROPION HCL [Concomitant]
  16. METHYLPHENIDATE HCL [Concomitant]
  17. BACLOFEN [Concomitant]
  18. TAMSULOSIN HCL [Concomitant]
  19. SENNA ALEXANDRINA [Concomitant]
  20. VITAMIN CAP [Concomitant]

REACTIONS (8)
  - ACUTE MYOCARDIAL INFARCTION [None]
  - CLOSTRIDIUM DIFFICILE COLITIS [None]
  - CORONARY ARTERY OCCLUSION [None]
  - CORONARY ARTERY STENOSIS [None]
  - DILATATION ATRIAL [None]
  - NO THERAPEUTIC RESPONSE [None]
  - PROCEDURAL HYPOTENSION [None]
  - VENTRICULAR HYPERTROPHY [None]
